FAERS Safety Report 23434835 (Version 1)
Quarter: 2024Q1

REPORT INFORMATION
  Report Type: Spontaneous
  Country: US (occurrence: US)
  Receive Date: 20240123
  Receipt Date: 20240123
  Transmission Date: 20240410
  Serious: No
  Sender: FDA-Public Use
  Company Number: US-NOVOPROD-1148902

PATIENT
  Sex: Female

DRUGS (1)
  1. WEGOVY [Suspect]
     Active Substance: SEMAGLUTIDE
     Indication: Product used for unknown indication
     Dosage: UNK
     Route: 058

REACTIONS (9)
  - Premature menopause [Unknown]
  - Appetite disorder [Unknown]
  - Insomnia [Unknown]
  - Hypometabolism [Unknown]
  - Headache [Unknown]
  - Injection site bruising [Unknown]
  - Constipation [Unknown]
  - Device malfunction [Unknown]
  - Off label use [Unknown]
